FAERS Safety Report 8609890-X (Version None)
Quarter: 2012Q3

REPORT INFORMATION
  Report Type: 
  Country: None (occurrence: None)
  Receive Date: 20120821
  Receipt Date: 20120820
  Transmission Date: 20120928
  Serious: Yes (Life-Threatening, Hospitalization)
  Sender: FDA-Public Use
  Company Number: DE-ROCHE-1021468

PATIENT
  Sex: Female
  Weight: 72 kg

DRUGS (16)
  1. PREDNISOLONE [Concomitant]
     Dates: start: 20100330
  2. ALLOPURINOL [Concomitant]
     Dates: start: 20090427
  3. AMLODIPINE [Concomitant]
     Dates: start: 20111207
  4. CANDESARTAN CILEXETIL [Concomitant]
     Dates: start: 20110203
  5. CARVEDILOL [Concomitant]
     Dates: start: 20100823
  6. MYCOPHENOLATE MEFETIL [Concomitant]
     Dates: start: 20081029
  7. MIRCERA [Suspect]
     Indication: PRODUCT USED FOR UNKNOWN INDICATION
     Dosage: DATE OF LAST DOSE:21 OCT 2011
     Route: 042
     Dates: start: 20110412
  8. OMEPRAZOLE [Concomitant]
     Dates: start: 20091206
  9. LEVOTHYROXINE SODIUM [Concomitant]
     Dates: start: 20100715
  10. MARCUMAR [Concomitant]
     Dates: start: 20111207
  11. MIRCERA [Suspect]
     Dosage: LAST DOSE PRIOR TO SAE ON 30/12/2011
  12. TORSEMIDE [Concomitant]
     Dates: start: 20111014
  13. MOXONIDIN [Concomitant]
     Dates: start: 20111219
  14. FLUVASTATIN NATRICUM [Concomitant]
     Dates: start: 20090504
  15. NATRIUMHYDROGENCARBONAT [Concomitant]
     Dates: start: 20110412
  16. ALFACALCIDOL [Concomitant]
     Dates: start: 20110216

REACTIONS (3)
  - ARTERIOSCLEROSIS [None]
  - MITRAL VALVE STENOSIS [None]
  - INFECTION [None]
